FAERS Safety Report 25749626 (Version 1)
Quarter: 2025Q3

REPORT INFORMATION
  Report Type: Spontaneous
  Country: EU (occurrence: EU)
  Receive Date: 20250902
  Receipt Date: 20250902
  Transmission Date: 20251020
  Serious: Yes (Other)
  Sender: AUROBINDO
  Company Number: EU-002147023-NVSC2025DE122284

PATIENT
  Age: 75 Year
  Sex: Female
  Weight: 66 kg

DRUGS (4)
  1. LETROZOLE [Suspect]
     Active Substance: LETROZOLE
     Indication: Hormone receptor positive HER2 negative breast cancer
     Dosage: 2.5 MILLIGRAM, ONCE A DAY
     Route: 048
     Dates: start: 20250714
  2. KISQALI [Suspect]
     Active Substance: RIBOCICLIB SUCCINATE
     Indication: Hormone receptor positive HER2 negative breast cancer
     Dosage: 200 MILLIGRAM, ONCE A DAY (200 MG, QD (21 DAYS DAILY INTAKE, 7 DAYS PAUSE))
     Route: 048
     Dates: start: 20250714, end: 20250727
  3. KISQALI [Suspect]
     Active Substance: RIBOCICLIB SUCCINATE
     Dosage: 800 MILLIGRAM, ONCE A DAY
     Route: 048
     Dates: start: 20250728, end: 20250729
  4. KISQALI [Suspect]
     Active Substance: RIBOCICLIB SUCCINATE
     Dosage: 200 MILLIGRAM, ONCE A DAY (200 MG, QD (21 DAYS DAILY INTAKE, 7 DAYS PAUSE))
     Route: 048
     Dates: start: 20250814

REACTIONS (3)
  - Electrocardiogram QT prolonged [Recovered/Resolved]
  - Overdose [Unknown]
  - Accidental overdose [Unknown]

NARRATIVE: CASE EVENT DATE: 20250728
